FAERS Safety Report 9672433 (Version 2)
Quarter: 2013Q4

REPORT INFORMATION
  Report Type: Spontaneous
  Country: ES (occurrence: None)
  Receive Date: 20131105
  Receipt Date: 20131115
  Transmission Date: 20140711
  Serious: Yes (Other)
  Sender: FDA-Public Use
  Company Number: AUR-APL-2013-09105

PATIENT
  Age: 17 Year
  Sex: Male

DRUGS (2)
  1. AMOXICILLIN + CLAVULANIC ACID [Suspect]
     Indication: PHARYNGOTONSILLITIS
     Dosage: 1050 MG(525 MG, 1 IN 12 HR)
  2. AMOXICILLIN(AMOXICILLIN) [Suspect]
     Indication: PERIODONTITIS
     Dosage: 1500 MG (500 MG, 1 IN 8 HR)

REACTIONS (4)
  - Pruritus [None]
  - Generalised erythema [None]
  - Angioedema [None]
  - Lymphocyte transformation test positive [None]
